FAERS Safety Report 6214254-2 (Version None)
Quarter: 2009Q2

REPORT INFORMATION
  Report Type: 
  Country: None (occurrence: None)
  Receive Date: 20090604
  Receipt Date: 20090526
  Transmission Date: 20091009
  Serious: Yes (Other)
  Sender: FDA-Public Use
  Company Number: PHHY2009CA18767

PATIENT
  Sex: Male

DRUGS (7)
  1. CO-DIOVAN T32564+ [Suspect]
     Dosage: 160/25
     Route: 048
     Dates: start: 20081026, end: 20090524
  2. EFFEXOR XR [Concomitant]
     Dosage: 75 DAILY
  3. IMOVANE [Concomitant]
  4. LIPITOR [Concomitant]
     Dosage: 20 DAILY
  5. ASPIRIN [Concomitant]
     Dosage: 80 QD
  6. MONOCOR [Concomitant]
     Dosage: 5 QD
  7. NORVASC [Concomitant]
     Dosage: 10 QD

REACTIONS (3)
  - ANGINA PECTORIS [None]
  - CORONARY ARTERY BYPASS [None]
  - CORONARY ARTERY INSUFFICIENCY [None]
